FAERS Safety Report 7387012-3 (Version None)
Quarter: 2011Q1

REPORT INFORMATION
  Report Type: 
  Country: None (occurrence: None)
  Receive Date: 20110331
  Receipt Date: 20110329
  Transmission Date: 20110831
  Serious: Yes (Other)
  Sender: FDA-Public Use
  Company Number: AU-PFIZER INC-2010071778

PATIENT
  Sex: Female

DRUGS (3)
  1. ZOLOFT [Suspect]
     Indication: ANXIETY
     Dosage: 50 MG, UNK
     Dates: start: 20091101
  2. PREMIA 5 [Suspect]
     Dosage: UNK
     Dates: start: 20080101
  3. ZOLOFT [Suspect]
     Indication: STRESS
     Dosage: 100 MG, UNK
     Dates: start: 20100201

REACTIONS (6)
  - DRUG WITHDRAWAL SYNDROME [None]
  - DRUG DOSE OMISSION [None]
  - MOOD ALTERED [None]
  - THINKING ABNORMAL [None]
  - DYSPNOEA [None]
  - TREMOR [None]
